FAERS Safety Report 15388476 (Version 2)
Quarter: 2018Q4

REPORT INFORMATION
  Report Type: Report from Study
  Country: BR (occurrence: BR)
  Receive Date: 20180915
  Receipt Date: 20181026
  Transmission Date: 20190204
  Serious: Yes (Other)
  Sender: FDA-Public Use
  Company Number: PHHY2018BR086568

PATIENT
  Age: 62 Year
  Sex: Female
  Weight: 71 kg

DRUGS (6)
  1. SOMATULINA [Concomitant]
     Active Substance: LANREOTIDE ACETATE
     Indication: NEUROENDOCRINE TUMOUR
     Dosage: UNK
     Route: 065
  2. SANDOSTATIN LAR DEPOT [Suspect]
     Active Substance: OCTREOTIDE ACETATE
     Indication: METASTASES TO LIVER
     Dosage: 30 MG, QMO (EVERY 28 DAYS)
     Route: 030
     Dates: start: 201710
  3. SOMATULINA [Concomitant]
     Active Substance: LANREOTIDE ACETATE
     Indication: METASTASES TO LIVER
  4. AFINITOR [Suspect]
     Active Substance: EVEROLIMUS
     Indication: NEUROENDOCRINE TUMOUR
     Dosage: 10 MG, QD
     Route: 048
     Dates: start: 201810
  5. AFINITOR [Suspect]
     Active Substance: EVEROLIMUS
     Indication: METASTASES TO LIVER
     Dosage: 10 MG, QD
     Route: 048
     Dates: start: 201805
  6. SANDOSTATIN LAR DEPOT [Suspect]
     Active Substance: OCTREOTIDE ACETATE
     Indication: NEUROENDOCRINE TUMOUR

REACTIONS (16)
  - Weight decreased [Unknown]
  - Neoplasm progression [Unknown]
  - Aphthous ulcer [Recovered/Resolved]
  - Stress [Recovered/Resolved]
  - Platelet count decreased [Not Recovered/Not Resolved]
  - Recurrent cancer [Recovered/Resolved]
  - Oral pain [Not Recovered/Not Resolved]
  - Alopecia [Recovered/Resolved]
  - Immunodeficiency [Recovering/Resolving]
  - Anaemia [Not Recovered/Not Resolved]
  - Osteoarthritis [Not Recovered/Not Resolved]
  - Feeding disorder [Recovered/Resolved]
  - Nervousness [Recovered/Resolved]
  - Neuroendocrine tumour [Recovered/Resolved]
  - Therapeutic response unexpected [Unknown]
  - Decreased appetite [Recovered/Resolved]

NARRATIVE: CASE EVENT DATE: 201806
